FAERS Safety Report 6431416-X (Version None)
Quarter: 2009Q4

REPORT INFORMATION
  Report Type: 
  Country: None (occurrence: None)
  Receive Date: 20091106
  Receipt Date: 20091031
  Transmission Date: 20100525
  Serious: Yes (Other)
  Sender: FDA-Public Use
  Company Number: PHEH2009US15023

PATIENT

DRUGS (2)
  1. SANDOSTATIN [Suspect]
     Dosage: UNK, UNK
  2. CHEMOTHERAPEUTICS NOS [Concomitant]
     Dosage: UNK, UNK

REACTIONS (6)
  - CARCINOID TUMOUR [None]
  - DIARRHOEA [None]
  - FLUSHING [None]
  - HEPATIC NEOPLASM [None]
  - HOT FLUSH [None]
  - SURGERY [None]
